FAERS Safety Report 25252630 (Version 1)
Quarter: 2025Q2

REPORT INFORMATION
  Report Type: Spontaneous
  Country: US (occurrence: US)
  Receive Date: 20250429
  Receipt Date: 20250429
  Transmission Date: 20250716
  Serious: No
  Sender: VERITY PHARMACEUTICALS INC.
  Company Number: US-VER-202500041

PATIENT
  Age: 60 Year
  Sex: Male

DRUGS (6)
  1. TRELSTAR [Suspect]
     Active Substance: TRIPTORELIN PAMOATE
     Indication: Prostate cancer
     Dosage: 11.25MG INJECTION EVERY 3 MONTHS
     Route: 065
  2. FLUCONAZOLE [Concomitant]
     Active Substance: FLUCONAZOLE
     Indication: Coccidioidomycosis
     Route: 065
  3. ASPIRIN [Concomitant]
     Active Substance: ASPIRIN
     Indication: Product used for unknown indication
     Route: 065
  4. LOSARTAN [Concomitant]
     Active Substance: LOSARTAN
     Indication: Product used for unknown indication
     Route: 065
  5. TAMSULOSIN [Concomitant]
     Active Substance: TAMSULOSIN
     Indication: Product used for unknown indication
     Route: 065
  6. ROSUVASTATIN [Concomitant]
     Active Substance: ROSUVASTATIN
     Indication: Product used for unknown indication
     Route: 065

REACTIONS (8)
  - Bone pain [Unknown]
  - Cognitive disorder [Unknown]
  - Pain in extremity [Unknown]
  - Deoxypyridinoline urine increased [Unknown]
  - Vascular endothelial growth factor overexpression [Unknown]
  - Pain in extremity [Unknown]
  - Loss of libido [Unknown]
  - Osteopenia [Unknown]

NARRATIVE: CASE EVENT DATE: 20240101
